FAERS Safety Report 24659681 (Version 1)
Quarter: 2024Q4

REPORT INFORMATION
  Report Type: Spontaneous
  Country: CN (occurrence: CN)
  Receive Date: 20241125
  Receipt Date: 20241125
  Transmission Date: 20250115
  Serious: Yes (Life-Threatening, Hospitalization)
  Sender: BAYER HEALTHCARE PHARMACEUTICALS INC.
  Company Number: CN-BAYER-2024A166586

PATIENT
  Age: 54 Year
  Sex: Female
  Weight: 65 kg

DRUGS (2)
  1. ULTRAVIST [Suspect]
     Active Substance: IOPROMIDE
     Indication: Computerised tomogram abdomen
     Dosage: 65 ML, ONCE, HIGH PRESSURE INJECTION
     Route: 042
     Dates: start: 20241115, end: 20241115
  2. ULTRAVIST [Suspect]
     Active Substance: IOPROMIDE
     Indication: Haemangioma of liver

REACTIONS (2)
  - Loss of consciousness [Recovered/Resolved]
  - Urinary incontinence [None]

NARRATIVE: CASE EVENT DATE: 20241115
